FAERS Safety Report 8785054 (Version 1)
Quarter: 2012Q4

REPORT INFORMATION
  Report Type: Spontaneous
  Country: US (occurrence: None)
  Receive Date: 20120907
  Receipt Date: 20120907
  Transmission Date: 20130627
  Serious: No
  Sender: FDA-Public Use
  Company Number: None

PATIENT
  Age: 32 Year
  Sex: Female

DRUGS (1)
  1. HUMATROPE [Suspect]
     Indication: CUSHING^S DISEASE
     Route: 058
     Dates: start: 20120614

REACTIONS (3)
  - Fluid retention [None]
  - Weight increased [None]
  - Carpal tunnel syndrome [None]
